FAERS Safety Report 21515980 (Version 1)
Quarter: 2022Q4

REPORT INFORMATION
  Report Type: Spontaneous
  Country: US (occurrence: US)
  Receive Date: 20221027
  Receipt Date: 20221027
  Transmission Date: 20230112
  Serious: No
  Sender: FDA-Public Use
  Company Number: US-BIOMARINAP-US-2022-146322

PATIENT

DRUGS (1)
  1. VOXZOGO [Suspect]
     Active Substance: VOSORITIDE
     Indication: Product used for unknown indication
     Dosage: ,
     Route: 058

REACTIONS (5)
  - Gastroenteritis viral [Unknown]
  - Pyrexia [Unknown]
  - Vomiting [Unknown]
  - Injection site pain [Unknown]
  - Anxiety [Unknown]
